FAERS Safety Report 5729936-6 (Version None)
Quarter: 2008Q2

REPORT INFORMATION
  Report Type: 
  Country: None (occurrence: None)
  Receive Date: 20080507
  Receipt Date: 20080430
  Transmission Date: 20081010
  Serious: Yes (Hospitalization)
  Sender: FDA-Public Use
  Company Number: DE-BRISTOL-MYERS SQUIBB COMPANY-14126882

PATIENT
  Sex: Male

DRUGS (1)
  1. PRAVASIN PROTECT [Suspect]
     Indication: MYOCARDIAL INFARCTION
     Dosage: STARTED BEFORE 4 YEARS.

REACTIONS (1)
  - OSTEOPENIA [None]
